FAERS Safety Report 10763201 (Version 2)
Quarter: 2015Q1

REPORT INFORMATION
  Report Type: Spontaneous
  Country: JP (occurrence: JP)
  Receive Date: 20150204
  Receipt Date: 20150226
  Transmission Date: 20150721
  Serious: Yes (Hospitalization, Other)
  Sender: FDA-Public Use
  Company Number: JP-PFIZER INC-2014318832

PATIENT
  Age: 59 Year
  Sex: Male
  Weight: 48 kg

DRUGS (5)
  1. SPIRIVA [Concomitant]
     Active Substance: TIOTROPIUM BROMIDE MONOHYDRATE
     Dosage: UNK
     Route: 055
     Dates: start: 20131226
  2. TOVIAZ [Suspect]
     Active Substance: FESOTERODINE FUMARATE
     Indication: HYPERTONIC BLADDER
     Dosage: 4 MG, 1X/DAY
     Route: 048
     Dates: start: 20141114, end: 20141118
  3. BETANIS [Concomitant]
     Active Substance: MIRABEGRON
     Dosage: 25 MG, 2X/DAY
     Route: 048
     Dates: start: 20141017, end: 20141114
  4. OXIS [Concomitant]
     Active Substance: FORMOTEROL FUMARATE
     Dosage: UNK
     Route: 055
     Dates: start: 20131219
  5. HACHIMIJIO-GAN [Suspect]
     Active Substance: HERBS\ROOTS
     Indication: HYPERTONIC BLADDER
     Dosage: UNK, 2X/DAY
     Route: 048
     Dates: start: 20141114, end: 20141118

REACTIONS (1)
  - Hepatic function abnormal [Recovered/Resolved]

NARRATIVE: CASE EVENT DATE: 20141117
